FAERS Safety Report 10128812 (Version 1)
Quarter: 2014Q2

REPORT INFORMATION
  Report Type: Spontaneous
  Country: US (occurrence: None)
  Receive Date: 20140424
  Receipt Date: 20140424
  Transmission Date: 20141212
  Serious: Yes (Other)
  Sender: FDA-Public Use
  Company Number: None

PATIENT
  Age: 77 Year
  Sex: Female

DRUGS (2)
  1. 5 % SODIUM FLUORIDE VARNISH [Suspect]
     Indication: DENTAL CARE
     Dosage: 0.5 ML 1 TIME ORAL-TOPICAL APPLICATION
     Route: 061
     Dates: start: 20140421, end: 20140421
  2. 5 % SODIUM FLUORIDE VARNISH [Suspect]
     Indication: DRY MOUTH
     Dosage: 0.5 ML 1 TIME ORAL-TOPICAL APPLICATION
     Route: 061
     Dates: start: 20140421, end: 20140421

REACTIONS (4)
  - Paraesthesia oral [None]
  - Throat tightness [None]
  - Feeling abnormal [None]
  - Nasal congestion [None]
